FAERS Safety Report 4682384-2 (Version None)
Quarter: 2005Q2

REPORT INFORMATION
  Report Type: 
  Country: None (occurrence: None)
  Receive Date: 20050602
  Receipt Date: 20050315
  Transmission Date: 20051028
  Serious: No
  Sender: FDA-Public Use
  Company Number: USA050393312

PATIENT
  Age: 77 Year
  Sex: Female

DRUGS (3)
  1. FORTEO [Suspect]
     Indication: OSTEOPOROSIS
     Dates: start: 20030301
  2. CYMBALTA [Suspect]
     Dates: start: 20050101
  3. ARICEPT [Concomitant]

REACTIONS (13)
  - AMNESIA [None]
  - COGNITIVE DISORDER [None]
  - CONTUSION [None]
  - DEPRESSION [None]
  - ECCHYMOSIS [None]
  - FALL [None]
  - INJECTION SITE HAEMORRHAGE [None]
  - NEUROPATHIC PAIN [None]
  - NEUROPATHY PERIPHERAL [None]
  - PAIN [None]
  - PARKINSON'S DISEASE [None]
  - SPINAL FRACTURE [None]
  - VESTIBULAR NEURONITIS [None]
